FAERS Safety Report 10677253 (Version 1)
Quarter: 2014Q4

REPORT INFORMATION
  Report Type: Spontaneous
  Country: US (occurrence: US)
  Receive Date: 20141226
  Receipt Date: 20141226
  Transmission Date: 20150529
  Serious: No
  Sender: FDA-Public Use
  Company Number: US-GE HEALTHCARE MEDICAL DIAGNOSTICS-INOX-PR-1411S-0001

PATIENT

DRUGS (2)
  1. INDIUM IN111 OXINE [Suspect]
     Active Substance: INDIUM
     Indication: PRODUCT USED FOR UNKNOWN INDICATION
     Dosage: DOSE NOT REPORTED
     Route: 065
  2. INDIUM IN111 OXINE [Suspect]
     Active Substance: INDIUM
     Indication: DIAGNOSTIC PROCEDURE

REACTIONS (2)
  - No adverse event [None]
  - Radioisotope scan abnormal [Unknown]
